FAERS Safety Report 9958294 (Version 1)
Quarter: 2014Q1

REPORT INFORMATION
  Report Type: Report from Study
  Country: US (occurrence: US)
  Receive Date: 20140304
  Receipt Date: 20140304
  Transmission Date: 20141002
  Serious: No
  Sender: FDA-Public Use
  Company Number: US-ABBVIE-13P-163-1093464-00

PATIENT
  Age: 35 Year
  Sex: Female

DRUGS (12)
  1. HUMIRA [Suspect]
     Indication: COLITIS ULCERATIVE
     Route: 058
     Dates: start: 201201
  2. HUMIRA [Suspect]
     Dates: start: 201204
  3. VITAMIN B2 [Concomitant]
     Indication: MIGRAINE
  4. MULTIPLE VITAMIN [Concomitant]
     Indication: PRODUCT USED FOR UNKNOWN INDICATION
  5. CALCIUM 600 MG + VITAMIN D3 [Concomitant]
     Indication: PRODUCT USED FOR UNKNOWN INDICATION
  6. WARFARIN [Concomitant]
     Indication: THROMBOSIS
     Dosage: 7.5 MG ON MONDAY, WEDNSEDYA, FRIDAY AND 5.0 MG ON OHTER 4 DAYS
  7. LISINOPRIL [Concomitant]
     Indication: HYPERTENSION
  8. VERAPAMIL [Concomitant]
     Indication: HYPERTENSION
  9. METHOTREXATE [Concomitant]
     Indication: PRODUCT USED FOR UNKNOWN INDICATION
     Dosage: 1 ML/2.5 MG
     Route: 050
  10. AMBIEN [Concomitant]
     Indication: PRODUCT USED FOR UNKNOWN INDICATION
     Dosage: AT HOUR OF SLEEP PRN -PT HAS BEEN TAKING EVERY OTHER NIGHT
  11. ABILIFY [Concomitant]
     Indication: BIPOLAR DISORDER
  12. LAMOTRIGINE [Concomitant]
     Indication: BIPOLAR DISORDER

REACTIONS (4)
  - Haematochezia [Not Recovered/Not Resolved]
  - Injection site pain [Not Recovered/Not Resolved]
  - Colitis ulcerative [Not Recovered/Not Resolved]
  - Injection site erythema [Not Recovered/Not Resolved]
